FAERS Safety Report 23591207 (Version 1)
Quarter: 2024Q1

REPORT INFORMATION
  Report Type: Spontaneous
  Country: US (occurrence: US)
  Receive Date: 20240304
  Receipt Date: 20240304
  Transmission Date: 20240410
  Serious: Yes (Other)
  Sender: FDA-Public Use
  Company Number: US-PFIZER INC-202400051038

PATIENT
  Age: 41 Year
  Sex: Female

DRUGS (5)
  1. SIROLIMUS [Suspect]
     Active Substance: SIROLIMUS
     Indication: Prophylaxis against graft versus host disease
     Dosage: UNK, DAYS +5 TO +90
  2. CYCLOPHOSPHAMIDE [Suspect]
     Active Substance: CYCLOPHOSPHAMIDE
     Indication: Prophylaxis against graft versus host disease
     Dosage: HIGH-DOSE
  3. PENTOSTATIN [Concomitant]
     Active Substance: PENTOSTATIN
     Indication: Bone marrow conditioning regimen
     Dosage: UNK
  4. CYCLOPHOSPHAMIDE [Concomitant]
     Active Substance: CYCLOPHOSPHAMIDE
     Indication: Bone marrow conditioning regimen
     Dosage: LOW-DOSE
  5. BUSULFAN [Concomitant]
     Active Substance: BUSULFAN
     Indication: Bone marrow conditioning regimen
     Dosage: (TOTAL TARGET AUC 37.8 MG X H/L)

REACTIONS (4)
  - Graft versus host disease [Recovered/Resolved]
  - Folliculitis [Unknown]
  - Cystitis viral [Unknown]
  - Toxic erythema of chemotherapy [Unknown]
